FAERS Safety Report 4675457-1 (Version None)
Quarter: 2005Q2

REPORT INFORMATION
  Report Type: 
  Country: None (occurrence: None)
  Receive Date: 20050527
  Receipt Date: 20050311
  Transmission Date: 20051028
  Serious: No
  Sender: FDA-Public Use
  Company Number: US-BRISTOL-MYERS SQUIBB COMPANY-12896346

PATIENT
  Sex: Female

DRUGS (5)
  1. ABILIFY [Suspect]
  2. PROZAC [Concomitant]
  3. TEGRETOL [Concomitant]
  4. NEURONTIN [Concomitant]
  5. SEROQUEL [Concomitant]

REACTIONS (1)
  - GALACTORRHOEA [None]
